FAERS Safety Report 4827767-2 (Version None)
Quarter: 2005Q4

REPORT INFORMATION
  Report Type: 
  Country: None (occurrence: None)
  Receive Date: 20051110
  Receipt Date: 20051102
  Transmission Date: 20060501
  Serious: Yes (Death, Other)
  Sender: FDA-Public Use
  Company Number: 163-20785-04060195

PATIENT
  Age: 75 Year
  Sex: Female

DRUGS (13)
  1. THALOMID [Suspect]
     Indication: MULTIPLE MYELOMA
     Dosage: 100 MG, QHS, ORAL
     Route: 048
     Dates: start: 20010806, end: 20040310
  2. TIAZAC [Concomitant]
  3. QUININE SULFATE [Concomitant]
  4. ALLEGRA [Concomitant]
  5. NEURONTIN [Concomitant]
  6. ESTRACE [Concomitant]
  7. PRAVACHOL [Concomitant]
  8. LASIX [Concomitant]
  9. LEVOXYL [Concomitant]
  10. SINEMET [Concomitant]
  11. LEXAPRO [Concomitant]
  12. CODEINE SUL TAB [Concomitant]
  13. COUMADIN [Concomitant]

REACTIONS (6)
  - LIVER DISORDER [None]
  - METASTASES TO LIVER [None]
  - MUSCULAR WEAKNESS [None]
  - NON-SMALL CELL LUNG CANCER [None]
  - RENAL DISORDER [None]
  - TREMOR [None]
